FAERS Safety Report 6550016-4 (Version None)
Quarter: 2010Q1

REPORT INFORMATION
  Report Type: 
  Country: None (occurrence: None)
  Receive Date: 20100125
  Receipt Date: 20100120
  Transmission Date: 20100710
  Serious: Yes (Life-Threatening)
  Sender: FDA-Public Use
  Company Number: CHPA2010DK01560

PATIENT
  Sex: Male
  Weight: 82 kg

DRUGS (1)
  1. SCOPOLAMINE [Suspect]
     Indication: MOTION SICKNESS
     Dosage: 1 MG, Q72H
     Route: 062
     Dates: start: 20091004, end: 20091004

REACTIONS (4)
  - DELUSION [None]
  - HALLUCINATION [None]
  - NIGHTMARE [None]
  - SOMNAMBULISM [None]
